FAERS Safety Report 11592705 (Version 2)
Quarter: 2015Q4

REPORT INFORMATION
  Report Type: Spontaneous
  Country: IT (occurrence: IT)
  Receive Date: 20151005
  Receipt Date: 20151008
  Transmission Date: 20160304
  Serious: Yes (Death, Hospitalization)
  Sender: FDA-Public Use
  Company Number: IT-TEVA-596691ACC

PATIENT
  Age: 74 Year
  Sex: Male

DRUGS (4)
  1. CETUXIMAB [Suspect]
     Active Substance: CETUXIMAB
     Indication: COLON CANCER METASTATIC
     Dosage: 400 MG CYCLICAL
     Route: 042
     Dates: start: 20130910, end: 20130910
  2. IRINOTECAN [Suspect]
     Active Substance: IRINOTECAN
     Indication: COLON CANCER METASTATIC
     Dosage: 180 UG/M2 CYCLICAL
     Route: 042
  3. IRINOTECAN [Suspect]
     Active Substance: IRINOTECAN
     Dosage: 180 MG/MQ
     Dates: start: 20130910
  4. ERBITUX [Suspect]
     Active Substance: CETUXIMAB

REACTIONS (6)
  - Thrombocytopenia [Unknown]
  - Febrile neutropenia [Fatal]
  - Leukopenia [Unknown]
  - Anaemia [Fatal]
  - Hyperbilirubinaemia [Unknown]
  - Melaena [Fatal]

NARRATIVE: CASE EVENT DATE: 20130916
